FAERS Safety Report 6924141-X (Version None)
Quarter: 2010Q3

REPORT INFORMATION
  Report Type: 
  Country: None (occurrence: None)
  Receive Date: 20100813
  Receipt Date: 20100810
  Transmission Date: 20110219
  Serious: Yes (Hospitalization)
  Sender: FDA-Public Use
  Company Number: FR-WYE-H06868808

PATIENT
  Sex: Male

DRUGS (7)
  1. RAPAMUNE [Suspect]
     Indication: PROPHYLAXIS AGAINST TRANSPLANT REJECTION
     Route: 048
     Dates: start: 20081022
  2. CELLCEPT [Concomitant]
     Indication: PROPHYLAXIS AGAINST TRANSPLANT REJECTION
     Dosage: UNKNOWN
     Dates: start: 20080923, end: 20081110
  3. ACTRAPID INSULIN NOVO [Concomitant]
     Indication: DIABETES MELLITUS
     Dosage: UNKNOWN
     Dates: start: 20080923
  4. NEXIUM [Concomitant]
     Dosage: UNKNOWN
     Dates: start: 20080923
  5. LOXEN [Concomitant]
     Dosage: UNKNOWN
     Dates: start: 20080923
  6. PROGRAF [Concomitant]
     Indication: PROPHYLAXIS AGAINST TRANSPLANT REJECTION
     Dosage: UNKNOWN
     Dates: start: 20080925
  7. SOLUPRED [Concomitant]
     Indication: PROPHYLAXIS AGAINST TRANSPLANT REJECTION
     Dosage: UNKNOWN
     Dates: start: 20080923

REACTIONS (1)
  - SKIN LESION [None]
